FAERS Safety Report 9403017 (Version 15)
Quarter: 2015Q3

REPORT INFORMATION
  Report Type: Spontaneous
  Country: US (occurrence: US)
  Receive Date: 20130716
  Receipt Date: 20150716
  Transmission Date: 20151125
  Serious: Yes (Hospitalization, Other)
  Sender: FDA-Public Use
  Company Number: US-GLAXOSMITHKLINE-A1023112A

PATIENT
  Age: 46 Year
  Sex: Female
  Weight: 68.27 kg

DRUGS (9)
  1. FLOLAN [Suspect]
     Active Substance: EPOPROSTENOL SODIUM
     Dosage: UNK
     Dates: start: 20130427
  2. FLOLAN [Suspect]
     Active Substance: EPOPROSTENOL SODIUM
     Dosage: UNK
     Dates: start: 20130427
  3. FLOLAN [Suspect]
     Active Substance: EPOPROSTENOL SODIUM
     Dosage: UNK
     Dates: start: 20130427
  4. FLOLAN [Suspect]
     Active Substance: EPOPROSTENOL SODIUM
     Dosage: UNK
     Dates: start: 20130427
  5. FLOLAN [Suspect]
     Active Substance: EPOPROSTENOL SODIUM
     Indication: PULMONARY ARTERIAL HYPERTENSION
     Dosage: 4 NG/KG/MIN, CO
     Route: 042
     Dates: start: 20130427
  6. FLOLAN [Suspect]
     Active Substance: EPOPROSTENOL SODIUM
     Dosage: 4 NG/KG/MIN, CO
     Route: 042
  7. FLOLAN [Suspect]
     Active Substance: EPOPROSTENOL SODIUM
     Dosage: 5 NG/KG/MIN CONTINUOUS
     Dates: start: 20140825
  8. ADCIRCA [Concomitant]
     Active Substance: TADALAFIL
  9. FLOLAN [Suspect]
     Active Substance: EPOPROSTENOL SODIUM
     Dosage: 4 NG/KG/MIN, CO

REACTIONS (21)
  - Infusion site infection [Recovered/Resolved]
  - Pain [Unknown]
  - Diarrhoea [Not Recovered/Not Resolved]
  - Medical device complication [Not Recovered/Not Resolved]
  - Drug intolerance [Unknown]
  - Cardiac pacemaker removal [Unknown]
  - Catheter site pain [Not Recovered/Not Resolved]
  - Nausea [Unknown]
  - Sepsis [Recovered/Resolved]
  - Device related infection [Not Recovered/Not Resolved]
  - Central venous catheterisation [Recovered/Resolved]
  - Feeling abnormal [Recovered/Resolved]
  - Device related sepsis [Recovered/Resolved]
  - Vomiting [Not Recovered/Not Resolved]
  - Feeling hot [Recovered/Resolved]
  - Hospitalisation [Unknown]
  - Burning sensation [Unknown]
  - Palpitations [Unknown]
  - Malaise [Recovered/Resolved]
  - Headache [Unknown]
  - Dizziness [Unknown]

NARRATIVE: CASE EVENT DATE: 20130618
